FAERS Safety Report 9166248 (Version 2)
Quarter: 2013Q4

REPORT INFORMATION
  Report Type: Spontaneous
  Country: US (occurrence: US)
  Receive Date: 20130315
  Receipt Date: 20131107
  Transmission Date: 20140711
  Serious: Yes (Death, Other)
  Sender: FDA-Public Use
  Company Number: US-NAPPMUNDI-USA-2013-0099612

PATIENT
  Age: 39 Year
  Sex: Female

DRUGS (4)
  1. MORPHINE SULFATE (SIMILAR TO NDA 19-516) [Suspect]
     Indication: DRUG ABUSE
  2. OXYCODONE HYDROCHLORIDE (SIMILAR TO NDA 22-272) [Suspect]
     Indication: DRUG ABUSE
  3. ALCOHOL [Suspect]
     Indication: ALCOHOL USE
     Route: 048
  4. OXYMORPHONE [Suspect]
     Indication: DRUG ABUSE

REACTIONS (6)
  - Death [Fatal]
  - Substance abuse [Unknown]
  - Victim of homicide [Fatal]
  - Loss of consciousness [Unknown]
  - Respiratory arrest [Unknown]
  - Drug level increased [Unknown]
